FAERS Safety Report 6029993-6 (Version None)
Quarter: 2009Q1

REPORT INFORMATION
  Report Type: 
  Country: None (occurrence: None)
  Receive Date: 20090107
  Receipt Date: 20090105
  Transmission Date: 20090719
  Serious: Yes (Other)
  Sender: FDA-Public Use
  Company Number: B0552629A

PATIENT
  Age: 22 Year
  Sex: Female

DRUGS (4)
  1. LAMICTAL [Suspect]
     Indication: EPILEPSY
     Dosage: 300MG PER DAY
     Route: 065
  2. EPILIM [Concomitant]
     Dosage: 400MG PER DAY
  3. KEPPRA [Concomitant]
     Dosage: 1500MG PER DAY
  4. LEVOTHYROXINE SODIUM [Concomitant]
     Dosage: 50MCG PER DAY
     Dates: start: 20081101

REACTIONS (8)
  - ABDOMINAL PAIN UPPER [None]
  - HYPOTHYROIDISM [None]
  - MOOD SWINGS [None]
  - SYNCOPE [None]
  - TEMPERATURE INTOLERANCE [None]
  - THYROXINE DECREASED [None]
  - VOMITING [None]
  - WEIGHT INCREASED [None]
